FAERS Safety Report 7394760-8 (Version None)
Quarter: 2011Q2

REPORT INFORMATION
  Report Type: 
  Country: None (occurrence: None)
  Receive Date: 20110405
  Receipt Date: 20110324
  Transmission Date: 20111010
  Serious: Yes (Hospitalization)
  Sender: FDA-Public Use
  Company Number: JP-ROCHE-768615

PATIENT
  Age: 65 Year
  Sex: Male

DRUGS (4)
  1. PEGASYS [Suspect]
     Indication: HEPATITIS C
     Dosage: ADMINISTRATION EVERY MONDAY. ON 14 MARCH 2011 REPORTED THAT INF ADMINISTRATION WAS SUSPENDED.
     Route: 058
     Dates: start: 20100614, end: 20110307
  2. COPEGUS [Suspect]
     Indication: HEPATITIS C
     Route: 048
     Dates: start: 20100614
  3. COPEGUS [Suspect]
     Dosage: DOSE DECREASED FROM 800 MG TO 600 MG.
     Route: 048
  4. COPEGUS [Suspect]
     Route: 048
     Dates: end: 20110307

REACTIONS (2)
  - INTERSTITIAL LUNG DISEASE [None]
  - HAEMOGLOBIN DECREASED [None]
